FAERS Safety Report 7020956-0 (Version None)
Quarter: 2010Q3

REPORT INFORMATION
  Report Type: 
  Country: None (occurrence: None)
  Receive Date: 20100929
  Receipt Date: 20091022
  Transmission Date: 20110219
  Serious: No
  Sender: FDA-Public Use
  Company Number: A0812984A

PATIENT
  Age: 13 Year
  Sex: Male

DRUGS (2)
  1. RELENZA [Suspect]
     Indication: INFLUENZA
     Dosage: 2BLS TWICE PER DAY
     Route: 055
     Dates: start: 20091018
  2. NO CONCURRENT MEDICATION [Concomitant]

REACTIONS (2)
  - OROPHARYNGEAL BLISTERING [None]
  - STOMATITIS [None]
